FAERS Safety Report 8598352-4 (Version None)
Quarter: 2012Q3

REPORT INFORMATION
  Report Type: 
  Country: None (occurrence: None)
  Receive Date: 20120816
  Receipt Date: 20120808
  Transmission Date: 20120928
  Serious: Yes (Hospitalization, Other)
  Sender: FDA-Public Use
  Company Number: JP-ELI_LILLY_AND_COMPANY-JP201102000712

PATIENT
  Age: 45 Year
  Sex: Male

DRUGS (1)
  1. CIALIS [Suspect]
     Route: 048

REACTIONS (7)
  - COUNTERFEIT DRUG ADMINISTERED [None]
  - CEREBRAL INFARCTION [None]
  - HYPERTENSION [None]
  - RENAL FAILURE ACUTE [None]
  - CARDIAC FAILURE [None]
  - PULMONARY OEDEMA [None]
  - THROMBOSIS [None]
